FAERS Safety Report 16478038 (Version 12)
Quarter: 2021Q3

REPORT INFORMATION
  Report Type: Report from Study
  Country: JP (occurrence: JP)
  Receive Date: 20190626
  Receipt Date: 20210831
  Transmission Date: 20211014
  Serious: Yes (Life-Threatening, Hospitalization)
  Sender: FDA-Public Use
  Company Number: JP-ROCHE-2343200

PATIENT
  Age: 60 Year
  Sex: Female
  Weight: 64 kg

DRUGS (2)
  1. PACLITAXEL. [Suspect]
     Active Substance: PACLITAXEL
     Indication: TRIPLE NEGATIVE BREAST CANCER
     Dosage: DATE OF MOST RECENT DOSE OF PACLITAXEL PRIOR TO AE AND SAE ONSET: 12/JUN/2019 (127.04 MG)?SUBSEQUENT
     Route: 042
     Dates: start: 20190327
  2. ATEZOLIZUMAB. [Suspect]
     Active Substance: ATEZOLIZUMAB
     Indication: TRIPLE NEGATIVE BREAST CANCER
     Dosage: DATE OF MOST RECENT DOSE OF ATEZOLIZUMAB PRIOR TO AE AND SAE ONSET: 05/JUN/2019?SUBSEQUENTLY RECEIVE
     Route: 041
     Dates: start: 20190327, end: 20190515

REACTIONS (2)
  - Hypopituitarism [Recovering/Resolving]
  - Ovarian vein thrombosis [Recovered/Resolved]

NARRATIVE: CASE EVENT DATE: 20190617
